FAERS Safety Report 16723594 (Version 1)
Quarter: 2019Q3

REPORT INFORMATION
  Report Type: Spontaneous
  Country: US (occurrence: US)
  Receive Date: 20190821
  Receipt Date: 20190821
  Transmission Date: 20191005
  Serious: Yes (Other)
  Sender: FDA-Public Use
  Company Number: US-HETERO-HET2019US01146

PATIENT
  Age: 59 Year
  Sex: Male

DRUGS (1)
  1. LITHIUM. [Suspect]
     Active Substance: LITHIUM
     Indication: SCHIZOAFFECTIVE DISORDER
     Dosage: UNK
     Route: 065

REACTIONS (3)
  - Schizoaffective disorder [Unknown]
  - Condition aggravated [Unknown]
  - Nerve injury [Unknown]
